FAERS Safety Report 4691291-0 (Version None)
Quarter: 2005Q2

REPORT INFORMATION
  Report Type: 
  Country: None (occurrence: None)
  Receive Date: 20050610
  Receipt Date: 20050531
  Transmission Date: 20051028
  Serious: Yes (Hospitalization, Other)
  Sender: FDA-Public Use
  Company Number: HQWYE883123MAY05

PATIENT
  Age: 64 Year
  Sex: Male
  Weight: 109 kg

DRUGS (18)
  1. RAPAMUNE [Suspect]
     Indication: PROPHYLAXIS AGAINST TRANSPLANT REJECTION
     Dosage: 6 MG 1X PER 1 DAY, ORAL
     Route: 048
     Dates: start: 20050121
  2. RAPAMUNE [Suspect]
  3. CELLCEPT [Suspect]
     Indication: PROPHYLAXIS AGAINST TRANSPLANT REJECTION
     Dosage: 1 G 2X PER 1 DAY, ORAL
     Route: 048
     Dates: start: 20050121
  4. PREDNISONE (PREDNISONE, ) [Concomitant]
     Indication: PROPHYLAXIS AGAINST TRANSPLANT REJECTION
     Dosage: 5 MG DAILY AND TAPERING, ORAL
     Route: 048
     Dates: start: 20050121
  5. ZENAPAX [Suspect]
     Indication: PROPHYLAXIS AGAINST TRANSPLANT REJECTION
     Dosage: ORAL
     Route: 048
  6. BACTRIM [Concomitant]
  7. PROTONIX [Concomitant]
  8. MULTIVITAMINS, PLAIN (MULTIVITAMINS, PLAIN) [Concomitant]
  9. NORVASC [Concomitant]
  10. CLONADINE (CLONADINE) [Concomitant]
  11. METOPROLOL TARTRATE [Concomitant]
  12. ZOCOR [Concomitant]
  13. LOPID [Concomitant]
  14. SYNTHROID [Concomitant]
  15. LEXAPRO [Concomitant]
  16. ACTOS [Concomitant]
  17. LANTUS [Concomitant]
  18. NOVOLOG [Concomitant]

REACTIONS (13)
  - ASTHENIA [None]
  - ATELECTASIS [None]
  - CARDIAC MURMUR [None]
  - CHILLS [None]
  - CREPITATIONS [None]
  - DYSPNOEA [None]
  - EJECTION FRACTION DECREASED [None]
  - EXCORIATION [None]
  - FATIGUE [None]
  - FLANK PAIN [None]
  - MYOCARDIAL ISCHAEMIA [None]
  - OEDEMA [None]
  - OEDEMA PERIPHERAL [None]
